FAERS Safety Report 9016232 (Version 3)
Quarter: 2013Q2

REPORT INFORMATION
  Report Type: Spontaneous
  Country: US (occurrence: US)
  Receive Date: 20130116
  Receipt Date: 20130403
  Transmission Date: 20140414
  Serious: Yes (Death, Hospitalization)
  Sender: FDA-Public Use
  Company Number: US-B.I. PHARMACEUTICALS,INC./RIDGEFIELD-2013-BI-00727BP

PATIENT
  Age: 62 Year
  Sex: Male
  Weight: 97.52 kg

DRUGS (9)
  1. PRADAXA [Suspect]
     Indication: ATRIAL FIBRILLATION
     Dosage: 300 MG
     Route: 048
     Dates: start: 20110316, end: 20110320
  2. AMBIEN [Concomitant]
  3. ASPIRIN [Concomitant]
     Dosage: 81 MG
     Route: 048
  4. CRESTOR [Concomitant]
     Indication: DYSLIPIDAEMIA
     Dosage: 40 MG
     Route: 048
  5. FLEXERIL [Concomitant]
     Route: 048
  6. HYDROCHLOROTHIAZIDE [Concomitant]
     Dosage: 25 MG
     Route: 048
  7. LOVAZA [Concomitant]
     Indication: DYSLIPIDAEMIA
     Dosage: 4000 MG
     Route: 048
  8. NEXIUM [Concomitant]
     Indication: GASTROOESOPHAGEAL REFLUX DISEASE
     Dosage: 40 MG
     Route: 048
  9. TOPROL XL [Concomitant]
     Dosage: 200 MG
     Route: 048

REACTIONS (3)
  - Gastrointestinal haemorrhage [Fatal]
  - Haemorrhage [Fatal]
  - Cerebral haemorrhage [Fatal]
